FAERS Safety Report 24211800 (Version 1)
Quarter: 2024Q3

REPORT INFORMATION
  Report Type: Spontaneous
  Country: CN (occurrence: CN)
  Receive Date: 20240814
  Receipt Date: 20240814
  Transmission Date: 20241017
  Serious: Yes (Other)
  Sender: MERCK
  Company Number: CN-009507513-2408CHN002723

PATIENT
  Age: 41 Year
  Sex: Female
  Weight: 59 kg

DRUGS (4)
  1. INVANZ [Suspect]
     Active Substance: ERTAPENEM SODIUM
     Indication: Ureterolithiasis
     Dosage: 1.0 G, QD
     Route: 041
     Dates: start: 20240718, end: 20240718
  2. INVANZ [Suspect]
     Active Substance: ERTAPENEM SODIUM
     Indication: Hydroureter
  3. INVANZ [Suspect]
     Active Substance: ERTAPENEM SODIUM
     Indication: Infection
  4. INVANZ [Suspect]
     Active Substance: ERTAPENEM SODIUM
     Indication: Pyrexia

REACTIONS (5)
  - Suffocation feeling [Recovered/Resolved]
  - Tachypnoea [Recovered/Resolved]
  - Nasal congestion [Recovered/Resolved]
  - Dyspnoea [Recovered/Resolved]
  - Nausea [Recovered/Resolved]

NARRATIVE: CASE EVENT DATE: 20240718
